FAERS Safety Report 16638671 (Version 3)
Quarter: 2020Q1

REPORT INFORMATION
  Report Type: Spontaneous
  Country: CZ (occurrence: CZ)
  Receive Date: 20190726
  Receipt Date: 20200203
  Transmission Date: 20200409
  Serious: Yes (Other)
  Sender: FDA-Public Use
  Company Number: CZ-MYLANLABS-2019M1069235

PATIENT
  Age: 65 Year
  Sex: Female

DRUGS (12)
  1. OXALIPLATIN. [Suspect]
     Active Substance: OXALIPLATIN
     Indication: ADENOCARCINOMA
  2. VECTIBIX [Suspect]
     Active Substance: PANITUMUMAB
     Indication: METASTASES TO LIVER
     Dosage: UNK, Q2W/ONCE PER TWO WEEKS
     Route: 065
     Dates: start: 201509, end: 201609
  3. FOLINIC ACID                       /00566702/ [Suspect]
     Active Substance: LEUCOVORIN CALCIUM
     Indication: COLON CANCER
  4. OXALIPLATIN. [Suspect]
     Active Substance: OXALIPLATIN
     Indication: METASTASES TO LIVER
     Dosage: UNK, Q2W/ONCE PER TWO WEEKS (4 CYCLE)
     Route: 065
     Dates: start: 201509, end: 201609
  5. FOLINIC ACID                       /00566702/ [Suspect]
     Active Substance: LEUCOVORIN CALCIUM
     Indication: METASTASES TO LIVER
     Dosage: UNK, Q2W/ONCE PER TWO WEEKS (4 CYCLE)
     Dates: start: 201509
  6. OXALIPLATIN. [Suspect]
     Active Substance: OXALIPLATIN
     Indication: COLON CANCER
  7. VECTIBIX [Suspect]
     Active Substance: PANITUMUMAB
     Indication: COLON CANCER
  8. PANITUMUMAB [Suspect]
     Active Substance: PANITUMUMAB
     Indication: ADENOCARCINOMA
     Dosage: UNK
  9. 5-FLUOROURACIL                     /00098801/ [Suspect]
     Active Substance: FLUOROURACIL
     Indication: METASTASES TO LIVER
     Dosage: UNK, Q2W/ONCE PER TWO WEEKS (4 CYCLE)
     Dates: start: 201509
  10. FOLINIC ACID                       /00566702/ [Suspect]
     Active Substance: LEUCOVORIN CALCIUM
     Indication: ADENOCARCINOMA
  11. 5-FLUOROURACIL                     /00098801/ [Suspect]
     Active Substance: FLUOROURACIL
     Indication: COLON CANCER
  12. NADROPARIN [Concomitant]
     Active Substance: NADROPARIN
     Indication: HYPERTENSION
     Dosage: UNK
     Route: 058

REACTIONS (12)
  - Rash [Recovered/Resolved]
  - Epistaxis [Recovered/Resolved]
  - Neuropathy peripheral [Not Recovered/Not Resolved]
  - Anaemia [Recovered/Resolved]
  - Dermatitis acneiform [Recovered/Resolved]
  - Toxicity to various agents [Unknown]
  - Herpes simplex [Recovered/Resolved]
  - Pain [Unknown]
  - Thrombocytopenia [Unknown]
  - Nausea [Recovered/Resolved]
  - Hypertrichosis [Recovered/Resolved]
  - Product use in unapproved indication [Unknown]

NARRATIVE: CASE EVENT DATE: 201509
